FAERS Safety Report 23944642 (Version 7)
Quarter: 2025Q1

REPORT INFORMATION
  Report Type: Report from Study
  Country: CO (occurrence: CO)
  Receive Date: 20240606
  Receipt Date: 20250322
  Transmission Date: 20250409
  Serious: Yes (Other)
  Sender: TAKEDA
  Company Number: CO-TAKEDA-2024TUS032860

PATIENT
  Age: 66 Year
  Sex: Male
  Weight: 78 kg

DRUGS (1)
  1. VEDOLIZUMAB [Suspect]
     Active Substance: VEDOLIZUMAB
     Indication: Colitis ulcerative

REACTIONS (15)
  - Colitis ulcerative [Recovering/Resolving]
  - Abdominal pain upper [Unknown]
  - Tibia fracture [Unknown]
  - Fibula fracture [Unknown]
  - Fall [Recovering/Resolving]
  - Insomnia [Recovering/Resolving]
  - Discouragement [Recovering/Resolving]
  - Diarrhoea [Unknown]
  - Frequent bowel movements [Recovering/Resolving]
  - Inappropriate schedule of product administration [Unknown]
  - Asthenia [Unknown]
  - Decreased appetite [Not Recovered/Not Resolved]
  - Headache [Not Recovered/Not Resolved]
  - Fatigue [Not Recovered/Not Resolved]
  - Pyrexia [Unknown]

NARRATIVE: CASE EVENT DATE: 20240323
